FAERS Safety Report 6418664-X (Version None)
Quarter: 2009Q4

REPORT INFORMATION
  Report Type: 
  Country: None (occurrence: None)
  Receive Date: 20091026
  Receipt Date: 20091013
  Transmission Date: 20100525
  Serious: Yes (Other)
  Sender: FDA-Public Use
  Company Number: ADR39712009

PATIENT

DRUGS (2)
  1. SIMVASTATIN [Suspect]
     Dosage: 80 MG
  2. LIPITOR [Concomitant]

REACTIONS (6)
  - ASPARTATE AMINOTRANSFERASE INCREASED [None]
  - BLOOD CREATINE PHOSPHOKINASE INCREASED [None]
  - LIVER FUNCTION TEST ABNORMAL [None]
  - MALAISE [None]
  - MYALGIA [None]
  - NAUSEA [None]
